FAERS Safety Report 7573199-6 (Version None)
Quarter: 2011Q2

REPORT INFORMATION
  Report Type: 
  Country: None (occurrence: None)
  Receive Date: 20110627
  Receipt Date: 20110613
  Transmission Date: 20111010
  Serious: Yes (Hospitalization)
  Sender: FDA-Public Use
  Company Number: US-MYLANLABS-2011S1012576

PATIENT
  Age: 14 Year
  Sex: Male

DRUGS (3)
  1. LORAZEPAM [Concomitant]
     Route: 065
  2. METHADONE HCL [Suspect]
     Route: 065
  3. HYDROMORPHONE HCL [Suspect]
     Route: 065

REACTIONS (1)
  - HYPERAESTHESIA [None]
